FAERS Safety Report 10250388 (Version 2)
Quarter: 2014Q2

REPORT INFORMATION
  Report Type: Spontaneous
  Country: US (occurrence: US)
  Receive Date: 20140620
  Receipt Date: 20140626
  Transmission Date: 20141212
  Serious: Yes (Disabling)
  Sender: FDA-Public Use
  Company Number: US-ACTELION-A-NJ2014-100394

PATIENT
  Age: 80 Year
  Sex: Female

DRUGS (13)
  1. OPSUMIT [Suspect]
     Indication: PULMONARY ARTERIAL HYPERTENSION
     Dosage: 10 MG, QD
     Route: 048
     Dates: start: 20140422
  2. TIMOLOL [Concomitant]
     Dosage: 1 DROP, BID
     Route: 047
  3. FUROSEMIDE [Concomitant]
     Dosage: 40 MG, UNK
  4. METOLAZONE [Concomitant]
     Dosage: 1 TABLET ONCE FOR 3 DAYS
     Route: 048
  5. LEVOXYL [Concomitant]
     Dosage: UNK
     Route: 048
  6. KLOR CON [Concomitant]
     Dosage: 2 TABS ONCE DAILY
     Route: 048
  7. WARFARIN [Concomitant]
     Dosage: 5 MG, UNK
     Route: 048
  8. WARFARIN [Concomitant]
     Dosage: 2.5 MG, UNK
     Route: 048
  9. REVATIO [Concomitant]
     Dosage: 20 MG, 4 TAB Q8H
     Route: 048
  10. EXCEDRIN BACK + BODY [Concomitant]
     Route: 048
  11. CALCIUM [Concomitant]
     Dosage: 1200 MG, QD
     Route: 048
  12. VITAMIN D [Concomitant]
     Dosage: 1000 IU, UNK
     Route: 048
  13. LOVASTATIN [Concomitant]
     Dosage: 20 MG, UNK

REACTIONS (3)
  - Glaucoma [Not Recovered/Not Resolved]
  - Visual acuity reduced [Not Recovered/Not Resolved]
  - Intraocular pressure increased [Not Recovered/Not Resolved]
